FAERS Safety Report 5447169-8 (Version None)
Quarter: 2007Q3

REPORT INFORMATION
  Report Type: 
  Country: None (occurrence: None)
  Receive Date: 20070910
  Receipt Date: 20070830
  Transmission Date: 20080115
  Serious: Yes (Other)
  Sender: FDA-Public Use
  Company Number: PHBS2007NL14618

PATIENT
  Age: 51 Year
  Sex: Male
  Weight: 84 kg

DRUGS (1)
  1. LIORESAL [Suspect]
     Indication: MUSCLE DISORDER
     Dosage: 5 MG, TID
     Dates: start: 20070816

REACTIONS (3)
  - COORDINATION ABNORMAL [None]
  - POLYURIA [None]
  - SOMNOLENCE [None]
